FAERS Safety Report 13075603 (Version 1)
Quarter: 2016Q4

REPORT INFORMATION
  Report Type: Spontaneous
  Country: US (occurrence: US)
  Receive Date: 20161229
  Receipt Date: 20161229
  Transmission Date: 20170207
  Serious: Yes (Death)
  Sender: FDA-Public Use
  Company Number: None

PATIENT
  Sex: Female

DRUGS (1)
  1. SUTENT [Suspect]
     Active Substance: SUNITINIB MALATE
     Indication: NEOPLASM RECURRENCE
     Dosage: 1CAP DAILY X4WK OFFX2WK PO
     Route: 048
     Dates: start: 20151103, end: 201612

REACTIONS (1)
  - Death [None]

NARRATIVE: CASE EVENT DATE: 2016
